FAERS Safety Report 7077940-0 (Version None)
Quarter: 2010Q4

REPORT INFORMATION
  Report Type: 
  Country: None (occurrence: None)
  Receive Date: 20101101
  Receipt Date: 20101022
  Transmission Date: 20110411
  Serious: Yes (Hospitalization, Other)
  Sender: FDA-Public Use
  Company Number: US-MERCK-1001USA01369

PATIENT
  Age: 69 Year
  Sex: Female
  Weight: 130 kg

DRUGS (5)
  1. FOSAMAX [Suspect]
     Indication: OSTEOPOROSIS
     Route: 048
     Dates: start: 20041201, end: 20050401
  2. FOSAMAX [Suspect]
     Route: 048
     Dates: start: 20050427, end: 20090101
  3. FOSAMAX [Suspect]
     Indication: OSTEOPENIA
     Route: 048
     Dates: start: 20041201, end: 20050401
  4. FOSAMAX [Suspect]
     Route: 048
     Dates: start: 20050427, end: 20090101
  5. FOSAMAX PLUS D [Suspect]
     Indication: OSTEOPOROSIS
     Route: 048

REACTIONS (47)
  - ABSCESS [None]
  - ANAEMIA [None]
  - ARTHROPATHY [None]
  - BRADYCARDIA [None]
  - CARDIAC MURMUR [None]
  - CAROTID ARTERY DISEASE [None]
  - CEREBRAL ISCHAEMIA [None]
  - CHEST PAIN [None]
  - DENTAL CARIES [None]
  - DEPRESSION [None]
  - FISTULA [None]
  - FLAT AFFECT [None]
  - GASTROENTERITIS [None]
  - GASTROOESOPHAGEAL REFLUX DISEASE [None]
  - GINGIVAL BLEEDING [None]
  - GINGIVAL DISORDER [None]
  - GINGIVAL INFECTION [None]
  - GOUT [None]
  - HELICOBACTER INFECTION [None]
  - HYPERLIPIDAEMIA [None]
  - HYPERPARATHYROIDISM PRIMARY [None]
  - HYPERTENSION [None]
  - IMPAIRED HEALING [None]
  - LACUNAR INFARCTION [None]
  - LIGAMENT RUPTURE [None]
  - MENISCUS LESION [None]
  - MUSCLE STRAIN [None]
  - MUSCULAR WEAKNESS [None]
  - OBESITY [None]
  - OEDEMA PERIPHERAL [None]
  - OROPHARYNGEAL BLISTERING [None]
  - OSTEOARTHRITIS [None]
  - OSTEONECROSIS OF JAW [None]
  - PAIN IN EXTREMITY [None]
  - PARAESTHESIA [None]
  - PERIODONTAL DISEASE [None]
  - ROAD TRAFFIC ACCIDENT [None]
  - SEASONAL ALLERGY [None]
  - SWELLING [None]
  - TOOTH DEPOSIT [None]
  - TOOTH FRACTURE [None]
  - TOOTH LOSS [None]
  - TRANSIENT ISCHAEMIC ATTACK [None]
  - TREATMENT NONCOMPLIANCE [None]
  - VITAMIN B12 DEFICIENCY [None]
  - VITAMIN D DEFICIENCY [None]
  - WEIGHT DECREASED [None]
